FAERS Safety Report 21959849 (Version 3)
Quarter: 2023Q2

REPORT INFORMATION
  Report Type: Report from Study
  Country: EG (occurrence: EG)
  Receive Date: 20230206
  Receipt Date: 20230512
  Transmission Date: 20230721
  Serious: Yes (Disabling)
  Sender: FDA-Public Use
  Company Number: EG-BIOGEN-2023BI01185219

PATIENT
  Age: 24 Year
  Sex: Female
  Weight: 60 kg

DRUGS (1)
  1. TYSABRI [Suspect]
     Active Substance: NATALIZUMAB
     Indication: Multiple sclerosis
     Dosage: 300/15 MG/ML
     Route: 050
     Dates: start: 20211215

REACTIONS (4)
  - Multiple sclerosis relapse [Not Recovered/Not Resolved]
  - Amnesia [Recovered/Resolved]
  - Lower limb fracture [Not Recovered/Not Resolved]
  - Depressed mood [Recovered/Resolved]

NARRATIVE: CASE EVENT DATE: 20221101
